FAERS Safety Report 24169690 (Version 1)
Quarter: 2024Q3

REPORT INFORMATION
  Report Type: Report from Study
  Country: DE (occurrence: DE)
  Receive Date: 20240803
  Receipt Date: 20240803
  Transmission Date: 20241017
  Serious: Yes (Death, Hospitalization, Other)
  Sender: ABBVIE
  Company Number: DE-ABBVIE-5864423

PATIENT
  Sex: Male

DRUGS (2)
  1. CARBIDOPA\LEVODOPA [Suspect]
     Active Substance: CARBIDOPA\LEVODOPA
     Indication: Parkinson^s disease
     Route: 050
     Dates: start: 20150302
  2. CARBIDOPA\LEVODOPA [Suspect]
     Active Substance: CARBIDOPA\LEVODOPA

REACTIONS (9)
  - Pneumonia [Fatal]
  - Bacterial infection [Unknown]
  - Choking [Unknown]
  - Hallucination [Unknown]
  - General physical health deterioration [Unknown]
  - Dysphagia [Unknown]
  - Femoral neck fracture [Unknown]
  - Feeding disorder [Unknown]
  - Asthenia [Unknown]

NARRATIVE: CASE EVENT DATE: 20240101
